FAERS Safety Report 13981650 (Version 1)
Quarter: 2017Q3

REPORT INFORMATION
  Report Type: Spontaneous
  Country: US (occurrence: US)
  Receive Date: 20170918
  Receipt Date: 20170918
  Transmission Date: 20171128
  Serious: No
  Sender: FDA-Public Use
  Company Number: US-BION-004925

PATIENT
  Age: 63 Year
  Sex: Female
  Weight: 90.72 kg

DRUGS (1)
  1. CETIRIZINE/CETIRIZINE HYDROCHLORIDE [Suspect]
     Active Substance: CETIRIZINE HYDROCHLORIDE
     Indication: RHINORRHOEA
     Route: 048

REACTIONS (3)
  - Rhinalgia [Recovering/Resolving]
  - Drug effect incomplete [Unknown]
  - Nasal dryness [Recovering/Resolving]

NARRATIVE: CASE EVENT DATE: 20160917
